FAERS Safety Report 9119451 (Version 3)
Quarter: 2013Q2

REPORT INFORMATION
  Report Type: Spontaneous
  Country: US (occurrence: US)
  Receive Date: 20130226
  Receipt Date: 20130415
  Transmission Date: 20140414
  Serious: No
  Sender: FDA-Public Use
  Company Number: US-PFIZER INC-2013067083

PATIENT
  Age: 45 Year
  Sex: Female
  Weight: 59 kg

DRUGS (3)
  1. PRISTIQ [Suspect]
     Dosage: 100 MG DAILY
  2. PRISTIQ [Suspect]
     Dosage: 50 MG DAILY
  3. MIRAPEX [Concomitant]
     Indication: RESTLESS LEGS SYNDROME
     Dosage: 0.5 MG DAILY

REACTIONS (4)
  - Emotional disorder [Not Recovered/Not Resolved]
  - Malaise [Not Recovered/Not Resolved]
  - Lethargy [Not Recovered/Not Resolved]
  - Nausea [Not Recovered/Not Resolved]
